FAERS Safety Report 19076966 (Version 1)
Quarter: 2021Q1

REPORT INFORMATION
  Report Type: Spontaneous
  Country: PL (occurrence: PL)
  Receive Date: 20210331
  Receipt Date: 20210331
  Transmission Date: 20210420
  Serious: Yes (Life-Threatening, Hospitalization)
  Sender: FDA-Public Use
  Company Number: PL-NOVOPROD-798036

PATIENT
  Age: 30 Year
  Sex: Male
  Weight: 70 kg

DRUGS (2)
  1. NOVORAPID [Suspect]
     Active Substance: INSULIN ASPART
     Indication: HYPOGLYCAEMIA
  2. NOVORAPID [Suspect]
     Active Substance: INSULIN ASPART
     Indication: PANCREATIC DISORDER
     Dosage: UNK
     Route: 058

REACTIONS (3)
  - Road traffic accident [Recovered/Resolved]
  - Hypoglycaemia [Recovered/Resolved]
  - Off label use [Unknown]

NARRATIVE: CASE EVENT DATE: 20200703
